FAERS Safety Report 6199619-X (Version None)
Quarter: 2009Q2

REPORT INFORMATION
  Report Type: 
  Country: None (occurrence: None)
  Receive Date: 20090522
  Receipt Date: 20080407
  Transmission Date: 20091009
  Serious: No
  Sender: FDA-Public Use
  Company Number: A0721623A

PATIENT
  Age: 72 Year
  Sex: Female

DRUGS (4)
  1. BACTROBAN [Suspect]
     Route: 061
     Dates: start: 20080310
  2. DIABINESE [Concomitant]
  3. GLUCOPHAGE XR [Concomitant]
  4. VITAMINS [Concomitant]

REACTIONS (2)
  - DYSPNOEA [None]
  - WHEEZING [None]
